FAERS Safety Report 20850071 (Version 2)
Quarter: 2022Q3

REPORT INFORMATION
  Report Type: Report from Study
  Country: BR (occurrence: BR)
  Receive Date: 20220519
  Receipt Date: 20220717
  Transmission Date: 20221027
  Serious: Yes (Other)
  Sender: FDA-Public Use
  Company Number: BR-NOVARTISPH-NVSC2021BR236829

PATIENT
  Age: 48 Year
  Sex: Female

DRUGS (3)
  1. KISQALI [Suspect]
     Active Substance: RIBOCICLIB
     Indication: Breast cancer metastatic
     Dosage: UNK (3 TABLET A DAY PER 21 DAYS)
     Route: 048
  2. KISQALI [Suspect]
     Active Substance: RIBOCICLIB
     Dosage: 3 DOSAGE FORM, QD (3 TABLET A DAY)
     Route: 065
     Dates: start: 20210301
  3. FASLODEX [Concomitant]
     Active Substance: FULVESTRANT
     Indication: Product used for unknown indication
     Dosage: 500 MG, THE FIRST MONTH AND EVEY 28 DAYS
     Route: 030

REACTIONS (23)
  - Diabetes mellitus [Unknown]
  - Feeling hot [Recovered/Resolved]
  - Hypersensitivity [Unknown]
  - Pruritus [Recovered/Resolved]
  - Erythema [Recovered/Resolved]
  - Skin atrophy [Unknown]
  - Wound [Unknown]
  - COVID-19 [Unknown]
  - Decreased appetite [Unknown]
  - Dairy intolerance [Unknown]
  - Viral infection [Unknown]
  - Influenza [Unknown]
  - Skin exfoliation [Unknown]
  - Pain [Unknown]
  - Peripheral swelling [Recovered/Resolved]
  - Cough [Recovering/Resolving]
  - Rash macular [Unknown]
  - Arthralgia [Not Recovered/Not Resolved]
  - Weight decreased [Not Recovered/Not Resolved]
  - Gait disturbance [Not Recovered/Not Resolved]
  - Plantar fasciitis [Unknown]
  - Scratch [Unknown]
  - Pruritus [Not Recovered/Not Resolved]

NARRATIVE: CASE EVENT DATE: 20210601
